FAERS Safety Report 6736660-X (Version None)
Quarter: 2010Q2

REPORT INFORMATION
  Report Type: 
  Country: None (occurrence: None)
  Receive Date: 20100520
  Receipt Date: 20100520
  Transmission Date: 20101027
  Serious: Yes (Hospitalization)
  Sender: FDA-Public Use
  Company Number: None

PATIENT
  Age: 62 Year
  Sex: Male
  Weight: 72.85 kg

DRUGS (2)
  1. DIPHENHYDRAMINE HCL [Suspect]
     Indication: ERYTHEMA
     Dates: start: 20100421, end: 20100421
  2. DIPHENHYDRAMINE HCL [Suspect]
     Indication: NASAL CONGESTION
     Dates: start: 20100421, end: 20100421

REACTIONS (4)
  - MUSCLE RIGIDITY [None]
  - PARKINSONISM [None]
  - TARDIVE DYSKINESIA [None]
  - TREMOR [None]
